FAERS Safety Report 16115701 (Version 2)
Quarter: 2019Q2

REPORT INFORMATION
  Report Type: Spontaneous
  Country: KR (occurrence: KR)
  Receive Date: 20190326
  Receipt Date: 20190422
  Transmission Date: 20190711
  Serious: Yes (Hospitalization)
  Sender: FDA-Public Use
  Company Number: KR-009507513-1901KOR002126

PATIENT
  Sex: Male

DRUGS (16)
  1. KEYTRUDA [Suspect]
     Active Substance: PEMBROLIZUMAB
     Indication: NASOPHARYNGEAL CANCER
     Dosage: QUANTITY 2, DAY 1
     Dates: start: 20181219, end: 20181219
  2. KEYTRUDA [Suspect]
     Active Substance: PEMBROLIZUMAB
     Dosage: QUANTITY 1, DAY 1
     Dates: start: 20190108, end: 20190108
  3. CEFTRIAXONE. [Concomitant]
     Active Substance: CEFTRIAXONE
     Dosage: QUANTITY 1, DAY 19
     Dates: start: 20181130, end: 20181224
  4. PENIRAMIN [Concomitant]
     Dosage: QUANTITY 1, DAY 3
     Dates: start: 20181130, end: 20181224
  5. MG TNA PERI [Concomitant]
     Dosage: QUANTITY 1, DAY 20
     Dates: start: 20181129, end: 20181223
  6. SODIUM CHLORIDE. [Concomitant]
     Active Substance: SODIUM CHLORIDE
     Dosage: QUANTITY 1, DAY 11
     Dates: start: 20181129, end: 20181224
  7. PETHIDINE HCL HANA [Concomitant]
     Dosage: QUANTITY 1, DAY 2
     Dates: start: 20181210, end: 20181213
  8. KEYTRUDA [Suspect]
     Active Substance: PEMBROLIZUMAB
     Dosage: QUANTITY 1, DAY 1
     Dates: start: 20190410, end: 20190410
  9. PACETA [Concomitant]
     Dosage: QUANTITY 1, DAY 5
     Dates: start: 20181204, end: 20181223
  10. SODIUM CHLORIDE. [Concomitant]
     Active Substance: SODIUM CHLORIDE
     Dosage: QUANTITY 1, DAY 20
     Dates: start: 20181130, end: 20181224
  11. HEPARIN SODIUM. [Concomitant]
     Active Substance: HEPARIN SODIUM
     Dosage: QUANTITY 1, DAY 2
     Dates: start: 20181214, end: 20181224
  12. THIAMINE HYDROCHLORIDE. [Concomitant]
     Active Substance: THIAMINE HYDROCHLORIDE
     Dosage: QUANTITY 2, DAY 9
     Dates: start: 20181215, end: 20181223
  13. SODIUM CHLORIDE. [Concomitant]
     Active Substance: SODIUM CHLORIDE
     Dosage: QUANTITY 1, DAY 25
     Dates: start: 20181130, end: 20181224
  14. KEYTRUDA [Suspect]
     Active Substance: PEMBROLIZUMAB
     Dosage: QUANTITY 1, DAY 1
     Dates: start: 20190130, end: 20190130
  15. KEYTRUDA [Suspect]
     Active Substance: PEMBROLIZUMAB
     Dosage: QUANTITY 1, DAY 3
     Dates: start: 20190220, end: 20190220
  16. KEYTRUDA [Suspect]
     Active Substance: PEMBROLIZUMAB
     Dosage: QUANTITY 1, DAY 1
     Dates: start: 20190313, end: 20190313

REACTIONS (5)
  - Adverse event [Unknown]
  - Adverse event [Unknown]
  - Product use in unapproved indication [Unknown]
  - Adverse event [Unknown]
  - Adverse event [Unknown]

NARRATIVE: CASE EVENT DATE: 201812
